FAERS Safety Report 6088297-6 (Version None)
Quarter: 2009Q1

REPORT INFORMATION
  Report Type: 
  Country: None (occurrence: None)
  Receive Date: 20090224
  Receipt Date: 20090121
  Transmission Date: 20090719
  Serious: No
  Sender: FDA-Public Use
  Company Number: US-BAYER-200911731NA

PATIENT
  Age: 23 Year
  Sex: Female
  Weight: 121 kg

DRUGS (1)
  1. MIRENA [Suspect]
     Indication: CONTRACEPTION
     Route: 015
     Dates: start: 20090116, end: 20090116

REACTIONS (2)
  - NAUSEA [None]
  - VOMITING [None]
